FAERS Safety Report 5372261-6 (Version None)
Quarter: 2007Q2

REPORT INFORMATION
  Report Type: 
  Country: None (occurrence: None)
  Receive Date: 20070615
  Receipt Date: 20061128
  Transmission Date: 20071010
  Serious: Yes (Other)
  Sender: FDA-Public Use
  Company Number: 200619672US

PATIENT
  Age: 61 Year
  Sex: Female

DRUGS (12)
  1. LANTUS [Suspect]
     Indication: DIABETES MELLITUS NON-INSULIN-DEPENDENT
     Dates: start: 20061128
  2. LANTUS [Suspect]
     Indication: DIABETES MELLITUS NON-INSULIN-DEPENDENT
     Dosage: 57 U
  3. LANTUS [Suspect]
     Indication: DIABETES MELLITUS NON-INSULIN-DEPENDENT
  4. CORTISONE        SOLUTION FOR INJECTION [Suspect]
  5. METFORMIN HYDROCHLORIDE [Concomitant]
  6. LISINOPRIL [Concomitant]
  7. METFORMIN HCL [Concomitant]
  8. ESCITALOPRAM OXALATE                 (LEXAPRO) [Concomitant]
  9. GLIPIZIDE (GLIPIZIDE XL) [Concomitant]
  10. ^LEVOSTATIN^ NOS [Concomitant]
  11. CELEBREX [Concomitant]
  12. BISOPROLOL FUMARATE [Concomitant]

REACTIONS (1)
  - HYPERGLYCAEMIA [None]
